FAERS Safety Report 20174595 (Version 1)
Quarter: 2021Q4

REPORT INFORMATION
  Report Type: Other
  Country: BG (occurrence: None)
  Receive Date: 20211213
  Receipt Date: 20211213
  Transmission Date: 20220303
  Serious: Yes (Other)
  Sender: FDA-Public Use
  Company Number: BG-ROCHE-2973471

PATIENT
  Age: 65 Year

DRUGS (1)
  1. AVASTIN [Suspect]
     Active Substance: BEVACIZUMAB
     Indication: Age-related macular degeneration
     Route: 050

REACTIONS (3)
  - Detachment of retinal pigment epithelium [Unknown]
  - Off label use [Unknown]
  - Off label use [Unknown]
